FAERS Safety Report 12046996 (Version 1)
Quarter: 2016Q1

REPORT INFORMATION
  Report Type: Spontaneous
  Country: US (occurrence: US)
  Receive Date: 20160208
  Receipt Date: 20160208
  Transmission Date: 20160526
  Serious: No
  Sender: FDA-Public Use
  Company Number: US-GLAXOSMITHKLINE-US2016017407

PATIENT
  Sex: Female

DRUGS (2)
  1. ABREVA [Suspect]
     Active Substance: DOCOSANOL
     Indication: DERMATITIS
     Dosage: UNK
     Dates: start: 20160130, end: 20160201
  2. ABREVA [Suspect]
     Active Substance: DOCOSANOL
     Indication: ORAL HERPES

REACTIONS (2)
  - Product use issue [Unknown]
  - Application site erythema [Not Recovered/Not Resolved]

NARRATIVE: CASE EVENT DATE: 20160201
